FAERS Safety Report 18024766 (Version 1)
Quarter: 2020Q3

REPORT INFORMATION
  Report Type: Spontaneous
  Country: US (occurrence: US)
  Receive Date: 20200714
  Receipt Date: 20200714
  Transmission Date: 20201103
  Serious: Yes (Hospitalization)
  Sender: FDA-Public Use
  Company Number: None

PATIENT
  Age: 70 Year
  Sex: Male
  Weight: 77 kg

DRUGS (1)
  1. HEPARIN (HEPARIN NA 10000 UNT/ML INJ) [Suspect]
     Active Substance: HEPARIN SODIUM
     Indication: DIALYSIS
     Dosage: ?          OTHER STRENGTH:10000 UNT/ML;OTHER DOSE:PRN;?
     Dates: end: 20200420

REACTIONS (3)
  - Heparin-induced thrombocytopenia test positive [None]
  - Anaemia [None]
  - Heparin-induced thrombocytopenia [None]

NARRATIVE: CASE EVENT DATE: 20200420
